FAERS Safety Report 24120454 (Version 1)
Quarter: 2024Q3

REPORT INFORMATION
  Report Type: Spontaneous
  Country: US (occurrence: None)
  Receive Date: 20240718
  Receipt Date: 20240718
  Transmission Date: 20241017
  Serious: Yes (Disabling)
  Sender: Public
  Company Number: None

PATIENT
  Age: 67 Year
  Sex: Female
  Weight: 81.65 kg

DRUGS (9)
  1. XGEVA [Suspect]
     Active Substance: DENOSUMAB
     Indication: Neoplasm malignant
     Dosage: OTHER STRENGTH : 1 SHOT;?FREQUENCY : MONTHLY;?
     Route: 058
     Dates: start: 202002, end: 202401
  2. lefrasol [Concomitant]
  3. IBRANCE [Concomitant]
     Active Substance: PALBOCICLIB
  4. CURCUMIN [Concomitant]
     Active Substance: CURCUMIN
  5. burgamot [Concomitant]
  6. VITAMINS [Concomitant]
     Active Substance: VITAMINS
  7. VITAMIN D NOS [Concomitant]
     Active Substance: CHOLECALCIFEROL\ERGOCALCIFEROL
  8. VITAMIN K [Concomitant]
     Active Substance: PHYTONADIONE
  9. vit calcium [Concomitant]

REACTIONS (2)
  - Dental caries [None]
  - Dental caries [None]

NARRATIVE: CASE EVENT DATE: 20240524
